FAERS Safety Report 9773575 (Version 3)
Quarter: 2015Q1

REPORT INFORMATION
  Report Type: Spontaneous
  Country: TR (occurrence: None)
  Receive Date: 20131217
  Receipt Date: 20150326
  Transmission Date: 20150721
  Serious: Yes (Other)
  Sender: FDA-Public Use
  Company Number: KAD201312-001586

PATIENT
  Age: 31 Year

DRUGS (2)
  1. VITAMIN A (RETINOL) [Suspect]
     Active Substance: RETINOL
     Indication: MEASLES
  2. RIBAVIRIN (RIBAVIRIN) [Suspect]
     Active Substance: RIBAVIRIN
     Indication: PNEUMONITIS
     Route: 042

REACTIONS (2)
  - Acute kidney injury [None]
  - Product use issue [None]
